FAERS Safety Report 18049194 (Version 2)
Quarter: 2020Q3

REPORT INFORMATION
  Report Type: Spontaneous
  Country: US (occurrence: US)
  Receive Date: 20200721
  Receipt Date: 20200902
  Transmission Date: 20201103
  Serious: No
  Sender: FDA-Public Use
  Company Number: US-PFIZER INC-2020277603

PATIENT
  Age: 65 Year
  Sex: Female

DRUGS (2)
  1. MEKTOVI [Suspect]
     Active Substance: BINIMETINIB
     Dosage: 45 MG
  2. BRAFTOVI [Suspect]
     Active Substance: ENCORAFENIB
     Dosage: 300 MG

REACTIONS (5)
  - Dysphonia [Unknown]
  - Dysphagia [Unknown]
  - Weight decreased [Unknown]
  - Productive cough [Unknown]
  - Gastrooesophageal reflux disease [Unknown]
